FAERS Safety Report 9704819 (Version 2)
Quarter: 2013Q4

REPORT INFORMATION
  Report Type: Spontaneous
  Country: US (occurrence: US)
  Receive Date: 20131122
  Receipt Date: 20131122
  Transmission Date: 20140711
  Serious: Yes (Hospitalization)
  Sender: FDA-Public Use
  Company Number: US-ELI_LILLY_AND_COMPANY-US201308008642

PATIENT
  Age: 58 Year
  Sex: Female

DRUGS (1)
  1. INSULIN HUMAN [Suspect]
     Indication: DIABETES MELLITUS
     Dosage: 25 U, UNKNOWN
     Route: 065

REACTIONS (3)
  - Stasis dermatitis [Unknown]
  - Cellulitis [Unknown]
  - Incorrect dose administered [Recovered/Resolved]
